FAERS Safety Report 11419178 (Version 1)
Quarter: 2015Q3

REPORT INFORMATION
  Report Type: Spontaneous
  Country: CH (occurrence: CH)
  Receive Date: 20150826
  Receipt Date: 20150826
  Transmission Date: 20151125
  Serious: Yes (Other)
  Sender: FDA-Public Use
  Company Number: PHHY2015CH101025

PATIENT
  Age: 74 Year
  Sex: Female

DRUGS (4)
  1. ZOLEDRONATE [Suspect]
     Active Substance: ZOLEDRONIC ACID
     Indication: BREAST CANCER METASTATIC
     Dosage: UNK UNK, QMO
     Route: 042
  2. EVEROLIMUS [Concomitant]
     Active Substance: EVEROLIMUS
     Indication: METASTASIS
     Dosage: 10 MG, QD
     Route: 065
  3. FULVESTRANT [Concomitant]
     Active Substance: FULVESTRANT
     Indication: METASTASIS
     Dosage: 500 MG, UNK
     Route: 065
  4. EXEMESTANE. [Concomitant]
     Active Substance: EXEMESTANE
     Indication: METASTASIS
     Dosage: 25 MG, QD
     Route: 065

REACTIONS (7)
  - Bone pain [Unknown]
  - Joint effusion [Unknown]
  - Carcinoembryonic antigen increased [Unknown]
  - Arthralgia [Unknown]
  - Osteonecrosis [Unknown]
  - Gait disturbance [Unknown]
  - Carbohydrate antigen 15-3 increased [Unknown]

NARRATIVE: CASE EVENT DATE: 201310
